FAERS Safety Report 9027156 (Version 7)
Quarter: 2014Q1

REPORT INFORMATION
  Report Type: Spontaneous
  Country: US (occurrence: US)
  Receive Date: 20130123
  Receipt Date: 20140319
  Transmission Date: 20141002
  Serious: Yes (Hospitalization)
  Sender: FDA-Public Use
  Company Number: US-GLAXOSMITHKLINE-A0998240A

PATIENT
  Age: 70 Year
  Sex: Female

DRUGS (4)
  1. FLOLAN [Suspect]
     Indication: PULMONARY ARTERIAL HYPERTENSION
     Dosage: 28NGKM CONTINUOUS
     Route: 042
     Dates: start: 19970822
  2. REVATIO [Concomitant]
  3. LETAIRIS [Concomitant]
  4. COUMADIN [Concomitant]

REACTIONS (7)
  - Device occlusion [Recovered/Resolved]
  - Diarrhoea [Recovered/Resolved]
  - Device leakage [Recovered/Resolved]
  - Upper respiratory tract infection [Recovered/Resolved]
  - Urticaria [Recovered/Resolved]
  - Medical device complication [Recovered/Resolved]
  - Sinusitis [Unknown]
